FAERS Safety Report 8066739-4 (Version None)
Quarter: 2012Q1

REPORT INFORMATION
  Report Type: 
  Country: None (occurrence: None)
  Receive Date: 20120124
  Receipt Date: 20120118
  Transmission Date: 20120608
  Serious: Yes (Other)
  Sender: FDA-Public Use
  Company Number: BR-BAYER-2011-113942

PATIENT
  Age: 30 Year
  Sex: Female
  Weight: 59 kg

DRUGS (10)
  1. ESTRADIOL VALERATE/DIENOGEST [Suspect]
     Indication: CONTRACEPTION
     Dosage: 1 DF, QD
     Route: 048
     Dates: start: 20100101, end: 20111001
  2. LANSOPRAZOLE [Concomitant]
     Indication: ABDOMINAL PAIN UPPER
     Dosage: 1 DF, QD
     Route: 048
     Dates: start: 20090101
  3. LISADOR [Concomitant]
     Indication: HEADACHE
     Dosage: 1 DF, PRN
     Route: 048
  4. TYLEX [PARACETAMOL] [Concomitant]
     Indication: BACK PAIN
     Dosage: 1 DF, PRN
     Route: 048
  5. TILEXIM [Concomitant]
     Indication: BACK PAIN
     Dosage: 1 DF, PRN
     Route: 048
  6. AZELAIC ACID [Suspect]
     Indication: ROSACEA
     Dosage: UNK
     Route: 061
     Dates: start: 20111122, end: 20111201
  7. AZELAIC ACID [Suspect]
     Dosage: UNK
     Route: 061
     Dates: start: 20111122, end: 20111201
  8. AZELAIC ACID [Suspect]
     Dosage: UNK
     Route: 061
     Dates: start: 20111122
  9. AZELAIC ACID [Suspect]
     Dosage: UNK
     Route: 061
     Dates: start: 20120101
  10. DIANE [Suspect]
     Dosage: UNK
     Route: 048
     Dates: start: 20060101

REACTIONS (15)
  - PAIN IN EXTREMITY [None]
  - APPLICATION SITE PARAESTHESIA [None]
  - WEIGHT INCREASED [None]
  - ONYCHOMYCOSIS [None]
  - VISION BLURRED [None]
  - ROSACEA [None]
  - SKIN DISORDER [None]
  - NERVOUSNESS [None]
  - ALOPECIA [None]
  - SENSATION OF HEAVINESS [None]
  - FATIGUE [None]
  - MOOD ALTERED [None]
  - ANGINA PECTORIS [None]
  - MASS [None]
  - ABDOMINAL PAIN [None]
